FAERS Safety Report 7983207-6 (Version None)
Quarter: 2011Q4

REPORT INFORMATION
  Report Type: 
  Country: None (occurrence: None)
  Receive Date: 20111215
  Receipt Date: 20111205
  Transmission Date: 20120403
  Serious: Yes (Death)
  Sender: FDA-Public Use
  Company Number: IE-MEDIMMUNE-MEDI-0014072

PATIENT
  Sex: Female
  Weight: 3.22 kg

DRUGS (2)
  1. SYNAGIS [Suspect]
     Route: 030
     Dates: start: 20111108, end: 20111108
  2. HIGH ENERGY FEEDS (UNSPECIFIED) [Concomitant]

REACTIONS (1)
  - DEATH [None]
